FAERS Safety Report 9438601 (Version 5)
Quarter: 2014Q3

REPORT INFORMATION
  Report Type: Spontaneous
  Country: JP (occurrence: JP)
  Receive Date: 20130802
  Receipt Date: 20140827
  Transmission Date: 20150326
  Serious: Yes (Hospitalization)
  Sender: FDA-Public Use
  Company Number: JP-VIIV HEALTHCARE LIMITED-B0911457A

PATIENT
  Age: 54 Year
  Sex: Male

DRUGS (68)
  1. PREZISTA [Suspect]
     Active Substance: DARUNAVIR ETHANOLATE
     Indication: HIV INFECTION
     Dosage: 800MG PER DAY
     Route: 048
     Dates: start: 20140201
  2. MAGLAX [Concomitant]
     Active Substance: MAGNESIUM OXIDE
     Indication: CONSTIPATION PROPHYLAXIS
     Dosage: 330MG THREE TIMES PER DAY
     Route: 048
     Dates: start: 20110110, end: 20110117
  3. CRAVIT [Concomitant]
     Active Substance: LEVOFLOXACIN
     Indication: LYMPHADENITIS
     Dosage: 1IUAX PER DAY
     Route: 048
     Dates: start: 20110331, end: 20110511
  4. ZOSYN [Concomitant]
     Active Substance: PIPERACILLIN SODIUM\TAZOBACTAM SODIUM
     Indication: LYMPHADENITIS
     Dosage: 4.5G THREE TIMES PER DAY
     Dates: start: 20111024, end: 20111104
  5. VALIXA [Suspect]
     Active Substance: VALGANCICLOVIR
     Indication: CYTOMEGALOVIRUS INFECTION
     Dosage: 900MG TWICE PER DAY
     Route: 048
     Dates: start: 20110109, end: 20110218
  6. ZITHROMAC [Suspect]
     Active Substance: AZITHROMYCIN DIHYDRATE
     Indication: PROPHYLAXIS
     Dates: start: 20110107, end: 20110304
  7. ESANBUTOL [Suspect]
     Active Substance: ETHAMBUTOL HYDROCHLORIDE
     Indication: MYCOBACTERIUM AVIUM COMPLEX INFECTION
     Dosage: 625MG PER DAY
     Route: 048
     Dates: start: 20110305, end: 20111227
  8. ESANBUTOL [Suspect]
     Active Substance: ETHAMBUTOL HYDROCHLORIDE
     Indication: MYCOBACTERIUM AVIUM COMPLEX INFECTION
     Dosage: 500MG PER DAY
     Route: 048
     Dates: start: 20111228, end: 20130123
  9. VFEND [Concomitant]
     Active Substance: VORICONAZOLE
     Indication: OESOPHAGEAL CANDIDIASIS
     Dosage: 2IUAX TWICE PER DAY
     Route: 048
     Dates: start: 20110114, end: 20110119
  10. MYSLEE [Concomitant]
     Active Substance: ZOLPIDEM TARTRATE
     Indication: INSOMNIA
     Dosage: 1IUAX PER DAY
     Route: 048
     Dates: start: 20110107, end: 20111114
  11. CEFEPIME [Concomitant]
     Active Substance: CEFEPIME\CEFEPIME HYDROCHLORIDE
     Indication: INFECTION
     Dosage: 1G TWICE PER DAY
     Dates: start: 20120203, end: 20120205
  12. FOLIAMIN [Concomitant]
     Active Substance: FOLIC ACID
     Indication: FOLATE DEFICIENCY
     Dosage: 2IUAX TWICE PER DAY
     Route: 048
     Dates: start: 20111019, end: 20120203
  13. REBAMIPIDE [Concomitant]
     Active Substance: REBAMIPIDE
     Indication: HEADACHE
     Route: 048
     Dates: start: 20130510, end: 20130721
  14. VALIXA [Suspect]
     Active Substance: VALGANCICLOVIR
     Indication: CYTOMEGALOVIRUS INFECTION
     Dosage: 900MG TWICE PER DAY
     Route: 048
     Dates: start: 20110929, end: 20111004
  15. VALIXA [Suspect]
     Active Substance: VALGANCICLOVIR
     Indication: CYTOMEGALOVIRUS INFECTION
     Dosage: 450MG TWICE PER DAY
     Route: 048
     Dates: start: 20111019, end: 20111125
  16. VALIXA [Suspect]
     Active Substance: VALGANCICLOVIR
     Indication: CYTOMEGALOVIRUS INFECTION
     Dosage: 450MG TWICE PER DAY
     Route: 048
     Dates: start: 20111209, end: 20111228
  17. ZITHROMAC [Suspect]
     Active Substance: AZITHROMYCIN DIHYDRATE
     Indication: LUNG INFECTION
     Dosage: 500MG PER DAY
     Dates: start: 20111228, end: 20130123
  18. MYCOBUTIN [Concomitant]
     Active Substance: RIFABUTIN
     Indication: LUNG INFECTION
     Dosage: 150MG THREE TIMES PER WEEK
     Route: 048
     Dates: start: 20110305, end: 20111227
  19. SAWACILLIN [Concomitant]
     Active Substance: AMOXICILLIN
     Indication: SYPHILIS
     Dosage: 4IUAX THREE TIMES PER DAY
     Route: 048
     Dates: start: 20110107, end: 20110203
  20. ENTERONON-R [Concomitant]
     Active Substance: PROBIOTICS NOS
     Indication: DIARRHOEA
     Dosage: 1G THREE TIMES PER DAY
     Route: 048
     Dates: start: 20110120, end: 20110218
  21. LOXONIN [Concomitant]
     Active Substance: LOXOPROFEN SODIUM
     Indication: PERIARTHRITIS
     Dosage: 1IUAX TWICE PER DAY
     Route: 048
     Dates: start: 20120222, end: 20130123
  22. MYSLEE [Concomitant]
     Active Substance: ZOLPIDEM TARTRATE
     Indication: INSOMNIA
     Dosage: 1IUAX PER DAY
     Route: 048
     Dates: start: 20120307
  23. REBAMIPIDE [Concomitant]
     Active Substance: REBAMIPIDE
     Indication: PROPHYLAXIS
     Dosage: 1IUAX TWICE PER DAY
     Route: 048
     Dates: start: 20130227, end: 20130428
  24. PREZISTA [Suspect]
     Active Substance: DARUNAVIR ETHANOLATE
     Indication: HIV INFECTION
     Dosage: 800MG PER DAY
     Route: 048
     Dates: start: 20110121, end: 20140131
  25. VALIXA [Suspect]
     Active Substance: VALGANCICLOVIR
     Indication: CYTOMEGALOVIRUS INFECTION
     Dosage: 450MG PER DAY
     Route: 048
     Dates: start: 20110727, end: 20110914
  26. BEZATOL SR [Suspect]
     Active Substance: BEZAFIBRATE
     Indication: HYPERLIPIDAEMIA
     Dosage: 1IUAX TWICE PER DAY
     Route: 048
     Dates: start: 20121212, end: 20130123
  27. TRUVADA [Concomitant]
     Active Substance: EMTRICITABINE\TENOFOVIR DISOPROXIL FUMARATE
     Indication: HIV INFECTION
     Route: 048
     Dates: start: 20110121, end: 20120110
  28. LOPEMIN [Concomitant]
     Active Substance: LOPERAMIDE HYDROCHLORIDE
     Indication: DIARRHOEA
     Dosage: 1IUAX PER DAY
     Route: 048
     Dates: start: 20110622, end: 20110928
  29. LOXONIN [Concomitant]
     Active Substance: LOXOPROFEN SODIUM
     Indication: PERIARTHRITIS
     Dosage: 1IUAX PER DAY
     Route: 048
     Dates: start: 20130227, end: 20130428
  30. ALBUMIN TANNATE [Concomitant]
     Active Substance: ALBUMIN BOVINE\TANNIC ACID
     Indication: DIARRHOEA
     Dosage: 1G THREE TIMES PER DAY
     Route: 048
     Dates: start: 20110129, end: 20110220
  31. NAUZELIN [Concomitant]
     Active Substance: DOMPERIDONE
     Indication: PROPHYLAXIS
     Dosage: 1IUAX THREE TIMES PER DAY
     Route: 048
     Dates: start: 20110206, end: 20111114
  32. CEFTRIAXONE SODIUM. [Concomitant]
     Active Substance: CEFTRIAXONE SODIUM
     Indication: LYMPHADENITIS
     Dosage: 1G TWICE PER DAY
     Dates: start: 20110317, end: 20110330
  33. KEFRAL [Concomitant]
     Active Substance: CEFACLOR
     Indication: LYMPHADENITIS
     Dosage: 1IUAX THREE TIMES PER DAY
     Route: 048
     Dates: start: 20111105, end: 20111118
  34. CALONAL [Concomitant]
     Active Substance: ACETAMINOPHEN
     Indication: HEADACHE
     Route: 048
     Dates: start: 20130510, end: 20130721
  35. BAKTAR [Suspect]
     Active Substance: SULFAMETHOXAZOLE\TRIMETHOPRIM
     Indication: ANTIFUNGAL PROPHYLAXIS
     Dosage: 1IUAX PER DAY
     Route: 048
     Dates: start: 20110121, end: 20130227
  36. SAMTIREL [Concomitant]
     Active Substance: ATOVAQUONE
     Indication: ANTIFUNGAL PROPHYLAXIS
     Dosage: 1500MG PER DAY
     Route: 048
     Dates: start: 20130227, end: 20130621
  37. SAWACILLIN [Concomitant]
     Active Substance: AMOXICILLIN
     Indication: INFECTION
     Dosage: 4IUAX THREE TIMES PER DAY
     Route: 048
     Dates: start: 20110205, end: 20110215
  38. TALION [Concomitant]
     Active Substance: BEPOTASTINE
     Indication: SEBORRHOEIC DERMATITIS
     Dosage: 1IUAX TWICE PER DAY
     Route: 048
     Dates: start: 20110107, end: 20110218
  39. FLUCONAZOLE. [Concomitant]
     Active Substance: FLUCONAZOLE
     Indication: OESOPHAGEAL CANDIDIASIS
     Dosage: 1IUAX PER DAY
     Route: 048
     Dates: start: 20110120, end: 20110224
  40. OMEPTOROL [Concomitant]
     Indication: NAUSEA
     Dosage: 1IUAX PER DAY
     Route: 048
     Dates: start: 20110122, end: 20120128
  41. FAROM [Concomitant]
     Active Substance: FAROPENEM SODIUM
     Indication: LYMPHADENITIS
     Dosage: 1IUAX THREE TIMES PER DAY
     Route: 048
     Dates: start: 20110920, end: 20110927
  42. PRODIF [Concomitant]
     Active Substance: FOSFLUCONAZOLE
     Indication: LYMPHADENITIS
     Dosage: 200MG PER DAY
     Dates: start: 20110928, end: 20111011
  43. VALIXA [Suspect]
     Active Substance: VALGANCICLOVIR
     Indication: CYTOMEGALOVIRUS INFECTION
     Dosage: 450MG TWICE PER DAY
     Route: 048
     Dates: start: 20110219, end: 20110726
  44. ZITHROMAC [Suspect]
     Active Substance: AZITHROMYCIN DIHYDRATE
     Indication: LUNG INFECTION
     Dosage: 600MG PER DAY
     Dates: start: 20110305, end: 20111227
  45. BAKTAR [Suspect]
     Active Substance: SULFAMETHOXAZOLE\TRIMETHOPRIM
     Indication: ANTIFUNGAL PROPHYLAXIS
     Dosage: 1IUAX TWICE PER DAY
     Route: 048
     Dates: start: 20110107, end: 20110120
  46. RISUMIC [Concomitant]
     Active Substance: AMEZINIUM METILSULFATE
     Indication: HYPOTENSION
     Dosage: 1IUAX TWICE PER DAY
     Route: 048
     Dates: start: 20110108, end: 20120127
  47. FLUCONAZOLE. [Concomitant]
     Active Substance: FLUCONAZOLE
     Indication: OESOPHAGEAL CANDIDIASIS
     Dosage: 1IUAX PER DAY
     Route: 048
     Dates: start: 20111012, end: 20111228
  48. LOXONIN [Concomitant]
     Active Substance: LOXOPROFEN SODIUM
     Indication: BACK PAIN
     Dosage: 1IUAX THREE TIMES PER DAY
     Route: 048
     Dates: start: 20110126, end: 20110323
  49. LOXONIN [Concomitant]
     Active Substance: LOXOPROFEN SODIUM
     Indication: BACK PAIN
     Dosage: 1IUAX TWICE PER DAY
     Route: 048
     Dates: start: 20110622, end: 20110726
  50. GASMOTIN [Concomitant]
     Active Substance: MOSAPRIDE CITRATE
     Indication: NAUSEA
     Dosage: 1IUAX THREE TIMES PER DAY
     Route: 048
     Dates: start: 20110302, end: 20120127
  51. CRAVIT [Concomitant]
     Active Substance: LEVOFLOXACIN
     Indication: INFECTION PROPHYLAXIS
     Dosage: 1IUAX PER DAY
     Route: 048
     Dates: start: 20111125, end: 20111228
  52. MARZULENE-S [Concomitant]
     Active Substance: SODIUM GUALENATE
     Indication: NAUSEA
     Dosage: .5G THREE TIMES PER DAY
     Route: 048
     Dates: start: 20110511, end: 20111110
  53. ROHYPNOL [Concomitant]
     Active Substance: FLUNITRAZEPAM
     Indication: INSOMNIA
     Dosage: .5IUAX PER DAY
     Route: 048
     Dates: start: 20110608, end: 20111114
  54. FOSAMAX [Suspect]
     Active Substance: ALENDRONATE SODIUM
     Indication: OSTEOPOROSIS
     Route: 048
     Dates: start: 20120815, end: 20130123
  55. LIPIDIL [Suspect]
     Active Substance: FENOFIBRATE
     Indication: HYPERLIPIDAEMIA
     Dosage: 1IUAX PER DAY
     Route: 048
     Dates: start: 20130621, end: 20130816
  56. DENOSINE (JAPAN) [Concomitant]
     Indication: CYTOMEGALOVIRUS VIRAEMIA
     Dosage: 5MG PER DAY
     Route: 042
     Dates: start: 20121005, end: 20121007
  57. CEPHADOL [Concomitant]
     Active Substance: DIPHENIDOL HYDROCHLORIDE
     Indication: DIZZINESS
     Dosage: 1IUAX THREE TIMES PER DAY
     Route: 048
     Dates: start: 20110107, end: 20120128
  58. LOXONIN [Concomitant]
     Active Substance: LOXOPROFEN SODIUM
     Indication: BACK PAIN
     Dosage: 1IUAX PER DAY
     Route: 048
     Dates: start: 20110727, end: 20110926
  59. EPZICOM [Suspect]
     Active Substance: ABACAVIR SULFATE\LAMIVUDINE
     Indication: HIV INFECTION
     Dosage: 1IUAX PER DAY
     Route: 048
     Dates: start: 20120111
  60. NORVIR [Suspect]
     Active Substance: RITONAVIR
     Indication: HIV INFECTION
     Route: 048
     Dates: start: 20110121
  61. VALIXA [Suspect]
     Active Substance: VALGANCICLOVIR
     Indication: CYTOMEGALOVIRUS INFECTION
     Dosage: 450MG TWICE PER DAY
     Route: 048
     Dates: start: 20120118, end: 20120222
  62. LOPEMIN [Concomitant]
     Active Substance: LOPERAMIDE HYDROCHLORIDE
     Indication: DIARRHOEA
     Dosage: 1IUAX TWICE PER DAY
     Route: 048
     Dates: start: 20110122, end: 20110223
  63. MYONAL [Concomitant]
     Active Substance: EPERISONE HYDROCHLORIDE
     Indication: BACK PAIN
     Dosage: 1IUAX THREE TIMES PER DAY
     Route: 048
     Dates: start: 20110126, end: 20110223
  64. CRAVIT [Concomitant]
     Active Substance: LEVOFLOXACIN
     Indication: BRONCHOPNEUMONIA
     Dosage: 1IUAX PER DAY
     Route: 048
     Dates: start: 20110914, end: 20110919
  65. CEFEPIME [Concomitant]
     Active Substance: CEFEPIME\CEFEPIME HYDROCHLORIDE
     Indication: LYMPHADENITIS
     Dosage: 1G TWICE PER DAY
     Dates: start: 20110928, end: 20111011
  66. FOSCAVIR [Concomitant]
     Active Substance: FOSCARNET SODIUM
     Indication: CYTOMEGALOVIRUS VIRAEMIA
     Dosage: 60MG THREE TIMES PER DAY
     Dates: start: 20111007, end: 20111018
  67. REBAMIPIDE [Concomitant]
     Active Substance: REBAMIPIDE
     Indication: PROPHYLAXIS
     Dosage: 1IUAX TWICE PER DAY
     Route: 048
     Dates: start: 20120222, end: 20130123
  68. ZYLORIC [Concomitant]
     Active Substance: ALLOPURINOL
     Indication: HYPERURICAEMIA
     Dosage: 100MG PER DAY
     Route: 048
     Dates: start: 20131108

REACTIONS (10)
  - Periarthritis [Recovering/Resolving]
  - Lymphadenitis [Recovering/Resolving]
  - Hyperlipidaemia [Not Recovered/Not Resolved]
  - Diarrhoea [Recovering/Resolving]
  - Renal impairment [Not Recovered/Not Resolved]
  - Osteoporosis [Recovering/Resolving]
  - Pancytopenia [Recovering/Resolving]
  - Mycobacterium avium complex infection [Recovering/Resolving]
  - Diabetes mellitus [Not Recovered/Not Resolved]
  - Hyperuricaemia [Not Recovered/Not Resolved]

NARRATIVE: CASE EVENT DATE: 2011
